FAERS Safety Report 16028721 (Version 10)
Quarter: 2023Q4

REPORT INFORMATION
  Report Type: Report from Study
  Country: AU (occurrence: AU)
  Receive Date: 20190304
  Receipt Date: 20231106
  Transmission Date: 20240109
  Serious: Yes (Hospitalization, Other)
  Sender: FDA-Public Use
  Company Number: PHHY2019AU046431

PATIENT
  Age: 62 Year
  Sex: Male

DRUGS (20)
  1. ILARIS [Suspect]
     Active Substance: CANAKINUMAB
     Indication: Schnitzler^s syndrome
     Dosage: 150 MG (EVERY 4 TO 8 WEEKS)
     Route: 058
  2. ILARIS [Suspect]
     Active Substance: CANAKINUMAB
     Dosage: 150 MG/ML, EVERY 8 WEEKS (LIQUID)
     Route: 058
     Dates: start: 20181029
  3. ILARIS [Suspect]
     Active Substance: CANAKINUMAB
     Dosage: 150 MG/ML, EVERY 8 WEEKS (LIQUID)
     Route: 058
     Dates: start: 20191101
  4. ILARIS [Suspect]
     Active Substance: CANAKINUMAB
     Dosage: 150 MG/ML, EVERY 8 WEEKS (LIQUID)
     Route: 058
     Dates: start: 20200217
  5. ILARIS [Suspect]
     Active Substance: CANAKINUMAB
     Dosage: 150 MG/ML, EVERY 8 WEEKS (LIQUID)
     Route: 058
     Dates: start: 20210607
  6. ILARIS [Suspect]
     Active Substance: CANAKINUMAB
     Dosage: 150 MG/ML, EVERY 8 WEEKS (LIQUID)
     Route: 058
     Dates: start: 20210807
  7. ILARIS [Suspect]
     Active Substance: CANAKINUMAB
     Dosage: 150 MG/ML (6 VIALS), ONE INJECTION EVERY 8 WEEKS
     Route: 058
     Dates: start: 2021, end: 202210
  8. ILARIS [Suspect]
     Active Substance: CANAKINUMAB
     Dosage: 150 MG/ML, EVERY 8 WEEKS (LIQUID)
     Route: 058
     Dates: start: 20211011
  9. ILARIS [Suspect]
     Active Substance: CANAKINUMAB
     Dosage: 150 MG/ML, EVERY 8 WEEKS (LIQUID)
     Route: 058
     Dates: start: 20211129
  10. ILARIS [Suspect]
     Active Substance: CANAKINUMAB
     Dosage: 150 MG/ML, EVERY 8 WEEKS (LIQUID)
     Route: 058
     Dates: start: 20220131
  11. ILARIS [Suspect]
     Active Substance: CANAKINUMAB
     Dosage: 150 MG/ML, EVERY 8 WEEKS (LIQUID)
     Route: 058
     Dates: start: 20220411
  12. ILARIS [Suspect]
     Active Substance: CANAKINUMAB
     Dosage: 150 MG/ML, EVERY 8 WEEKS (LIQUID)
     Route: 058
     Dates: start: 20220606
  13. ILARIS [Suspect]
     Active Substance: CANAKINUMAB
     Dosage: 150 MG/ML, EVERY 8 WEEKS (LIQUID)
     Route: 058
     Dates: start: 20220808
  14. ILARIS [Suspect]
     Active Substance: CANAKINUMAB
     Dosage: 150 MG/ML, EVERY 8 WEEKS (LIQUID)
     Route: 058
     Dates: start: 20221024
  15. ILARIS [Suspect]
     Active Substance: CANAKINUMAB
     Dosage: 150 MG/ML, EVERY 8 WEEKS (LIQUID)
     Route: 058
     Dates: start: 20230807
  16. PREDNISOLONE [Suspect]
     Active Substance: PREDNISOLONE
     Indication: Skin disorder
     Dosage: 50 MG, QD (HIGHEST)
     Route: 065
     Dates: start: 201712
  17. PREDNISOLONE [Suspect]
     Active Substance: PREDNISOLONE
     Dosage: 12.5 MG, QD (LOWEST)
     Route: 065
     Dates: start: 201712
  18. PREDNISOLONE [Suspect]
     Active Substance: PREDNISOLONE
     Dosage: GREATER THAN 10MG FOR MOST OF 2018
     Route: 065
     Dates: end: 2019
  19. CLOPIDOGREL [Concomitant]
     Active Substance: CLOPIDOGREL BISULFATE
     Indication: Product used for unknown indication
     Dosage: UNK
     Route: 065
  20. CYCLOSPORINE [Concomitant]
     Active Substance: CYCLOSPORINE
     Indication: Product used for unknown indication
     Dosage: UNK
     Route: 065

REACTIONS (8)
  - Diverticulitis intestinal perforated [Unknown]
  - Abdominal pain lower [Unknown]
  - Pseudomonas test positive [Unknown]
  - Seizure [Unknown]
  - Tremor [Unknown]
  - Loss of consciousness [Unknown]
  - White matter lesion [Unknown]
  - Product dose omission issue [Unknown]

NARRATIVE: CASE EVENT DATE: 20181116
